FAERS Safety Report 12631830 (Version 2)
Quarter: 2016Q3

REPORT INFORMATION
  Report Type: Spontaneous
  Country: US (occurrence: US)
  Receive Date: 20160808
  Receipt Date: 20160808
  Transmission Date: 20161109
  Serious: No
  Sender: FDA-Public Use
  Company Number: US-BEH-2016061201

PATIENT
  Sex: Female
  Weight: 65 kg

DRUGS (17)
  1. COENZYME Q10 [Concomitant]
     Active Substance: UBIDECARENONE
  2. BIOTIN [Concomitant]
     Active Substance: BIOTIN
  3. MULTIPLE VITAMIN [Concomitant]
     Active Substance: VITAMINS
  4. LIDOCAINE. [Concomitant]
     Active Substance: LIDOCAINE
  5. LORAZEPAM. [Concomitant]
     Active Substance: LORAZEPAM
  6. ASPIRIN. [Concomitant]
     Active Substance: ASPIRIN
  7. EPIPEN [Concomitant]
     Active Substance: EPINEPHRINE
  8. HIZENTRA [Suspect]
     Active Substance: HUMAN IMMUNOGLOBULIN G
     Indication: IMMUNODEFICIENCY
     Route: 058
  9. CALCIUM-MAGNESIUM-ZINC [Concomitant]
  10. FISH OIL [Concomitant]
     Active Substance: FISH OIL
  11. AMITRIPTYLINE [Concomitant]
     Active Substance: AMITRIPTYLINE
  12. SUMATRIPTAN SUCCINATE. [Concomitant]
     Active Substance: SUMATRIPTAN SUCCINATE
  13. CRANBERRY. [Concomitant]
     Active Substance: CRANBERRY
  14. ACETAMINOPHEN. [Concomitant]
     Active Substance: ACETAMINOPHEN
  15. DIPHENHYDRAMINE. [Concomitant]
     Active Substance: DIPHENHYDRAMINE
  16. PRAVASTATIN. [Concomitant]
     Active Substance: PRAVASTATIN
  17. CLARITIN [Concomitant]
     Active Substance: LORATADINE

REACTIONS (1)
  - Migraine [Unknown]
